FAERS Safety Report 6414946-6 (Version None)
Quarter: 2009Q4

REPORT INFORMATION
  Report Type: 
  Country: None (occurrence: None)
  Receive Date: 20091026
  Receipt Date: 20090629
  Transmission Date: 20100525
  Serious: No
  Sender: FDA-Public Use
  Company Number: US-ABBOTT-09P-163-0582795-00

PATIENT
  Sex: Female

DRUGS (3)
  1. LUPRON DEPOT [Suspect]
     Indication: MENORRHAGIA
     Dosage: ONCE
     Dates: start: 20081212, end: 20090612
  2. SYNTHROID [Concomitant]
     Indication: HYPERTHYROIDISM
     Dosage: 0.88 MG DAILY
     Dates: start: 20070101
  3. IRON [Concomitant]
     Indication: DRUG USE FOR UNKNOWN INDICATION

REACTIONS (4)
  - BLOOD PRESSURE INCREASED [None]
  - DIZZINESS [None]
  - HEADACHE [None]
  - MENSTRUATION IRREGULAR [None]
